FAERS Safety Report 6070597-7 (Version None)
Quarter: 2009Q1

REPORT INFORMATION
  Report Type: 
  Country: None (occurrence: None)
  Receive Date: 20090209
  Receipt Date: 20090129
  Transmission Date: 20090719
  Serious: Yes (Other)
  Sender: FDA-Public Use
  Company Number: US-PFIZER INC-2009162897

PATIENT
  Sex: Male
  Weight: 74.842 kg

DRUGS (1)
  1. CHANTIX [Suspect]
     Indication: SMOKING CESSATION THERAPY
     Route: 048
     Dates: start: 20090110, end: 20090120

REACTIONS (4)
  - DIZZINESS [None]
  - FALL [None]
  - HEAD INJURY [None]
  - SYNCOPE [None]
